FAERS Safety Report 7811697 (Version 3)
Quarter: 2015Q2

REPORT INFORMATION
  Report Type: Report from Study
  Country: JP (occurrence: JP)
  Receive Date: 20110214
  Receipt Date: 20150508
  Transmission Date: 20150821
  Serious: No
  Sender: FDA-Public Use
  Company Number: PHHY2011JP08338

PATIENT
  Age: 60 Year
  Sex: Male
  Weight: 42 kg

DRUGS (21)
  1. ICL670A [Suspect]
     Active Substance: DEFERASIROX
     Dosage: 500 MG, QOD
     Route: 048
     Dates: start: 20100826, end: 20100929
  2. PREMARIN [Concomitant]
     Active Substance: ESTROGENS, CONJUGATED
     Dosage: 0.625 MG, QD
     Route: 048
     Dates: start: 20100811, end: 20100906
  3. PREMARIN [Concomitant]
     Active Substance: ESTROGENS, CONJUGATED
     Dosage: 1.875 MG, QD
     Route: 048
     Dates: start: 20101109
  4. DUPHASTON [Concomitant]
     Active Substance: DYDROGESTERONE
     Dosage: 10 MG, QD
     Route: 048
     Dates: start: 20100716, end: 20100719
  5. BONZOL [Suspect]
     Active Substance: LANSOPRAZOLE
     Indication: APLASTIC ANAEMIA
     Dosage: 200 MG, UNK
     Route: 048
     Dates: start: 20091210
  6. DUPHASTON [Concomitant]
     Active Substance: DYDROGESTERONE
     Dosage: 10 MG, QD
     Route: 048
     Dates: start: 20100728, end: 20100731
  7. DUPHASTON [Concomitant]
     Active Substance: DYDROGESTERONE
     Dosage: 5 MG, QD
     Route: 048
     Dates: start: 20100825, end: 20100828
  8. ICL670A [Suspect]
     Active Substance: DEFERASIROX
     Indication: APLASTIC ANAEMIA
     Dosage: 500 MG, UNK
     Route: 048
     Dates: start: 20091119, end: 20091125
  9. PREMARIN [Concomitant]
     Active Substance: ESTROGENS, CONJUGATED
     Dosage: 0.625 MG, QD
     Route: 048
     Dates: start: 20101004, end: 20101108
  10. DUPHASTON [Concomitant]
     Active Substance: DYDROGESTERONE
     Dosage: 20 MG, QD
     Route: 048
     Dates: start: 20100720, end: 20100727
  11. DUPHASTON [Concomitant]
     Active Substance: DYDROGESTERONE
     Dosage: 10 MG, QD
     Route: 048
     Dates: start: 20101017, end: 20101106
  12. ICL670A [Suspect]
     Active Substance: DEFERASIROX
     Dosage: 500 MG, UNK
     Route: 048
     Dates: start: 20100121, end: 20100630
  13. PREMARIN [Concomitant]
     Active Substance: ESTROGENS, CONJUGATED
     Dosage: 2.5 MG, QD
     Route: 048
     Dates: start: 20100720, end: 20100727
  14. DUPHASTON [Concomitant]
     Active Substance: DYDROGESTERONE
     Indication: PRODUCT USED FOR UNKNOWN INDICATION
     Dosage: 10 MG, QD
     Route: 048
     Dates: start: 20100608, end: 20100629
  15. ICL670A [Suspect]
     Active Substance: DEFERASIROX
     Dosage: 750 MG, UNK
     Route: 048
     Dates: start: 20091126, end: 20091130
  16. PREMARIN [Concomitant]
     Active Substance: ESTROGENS, CONJUGATED
     Dosage: 1.25 MG, QD
     Route: 048
     Dates: start: 20100707, end: 20100719
  17. DUPHASTON [Concomitant]
     Active Substance: DYDROGESTERONE
     Dosage: 5 MG, QD
     Route: 048
     Dates: start: 20100915, end: 20100926
  18. DUPHASTON [Concomitant]
     Active Substance: DYDROGESTERONE
     Dosage: 10 MG, QD
     Route: 048
     Dates: start: 20101109
  19. MIYA-BM [Concomitant]
     Active Substance: CLOSTRIDIUM BUTYRICUM SPORES STRAIN M-55
     Indication: GASTROINTESTINAL DISORDER
     Dosage: 3 G, QD
     Route: 048
     Dates: start: 20100601
  20. PREMARIN [Concomitant]
     Active Substance: ESTROGENS, CONJUGATED
     Indication: APLASTIC ANAEMIA
     Dosage: 0.625 MG, QD
     Route: 048
     Dates: start: 20100608, end: 20100628
  21. PREMARIN [Concomitant]
     Active Substance: ESTROGENS, CONJUGATED
     Dosage: 1.25 MG, QD
     Route: 048
     Dates: start: 20100728, end: 20100809

REACTIONS (2)
  - Papule [Recovering/Resolving]
  - Renal impairment [Recovered/Resolved]

NARRATIVE: CASE EVENT DATE: 20100422
